FAERS Safety Report 5218577-5 (Version None)
Quarter: 2007Q1

REPORT INFORMATION
  Report Type: 
  Country: None (occurrence: None)
  Receive Date: 20061130
  Receipt Date: 20060918
  Transmission Date: 20070707
  Serious: Yes (Hospitalization)
  Sender: FDA-Public Use
  Company Number: US200606000655

PATIENT
  Sex: Male
  Weight: 88.4 kg

DRUGS (2)
  1. ZYPREXA [Suspect]
     Indication: ANXIETY
     Dates: start: 20020101, end: 20040101
  2. PAROXETINE [Concomitant]

REACTIONS (3)
  - DIABETES MELLITUS [None]
  - HYPERTENSION [None]
  - PANCREATITIS [None]
